FAERS Safety Report 24082504 (Version 1)
Quarter: 2024Q3

REPORT INFORMATION
  Report Type: Report from Study
  Country: US (occurrence: US)
  Receive Date: 20240712
  Receipt Date: 20240712
  Transmission Date: 20241016
  Serious: Yes (Hospitalization, Other)
  Sender: ROCHE
  Company Number: US-ROCHE-10000020608

PATIENT
  Age: 19 Year
  Sex: Female

DRUGS (1)
  1. OCREVUS [Suspect]
     Active Substance: OCRELIZUMAB
     Indication: Product used for unknown indication
     Route: 065

REACTIONS (8)
  - Hypersomnia [Unknown]
  - Fatigue [Unknown]
  - Encephalitis [Unknown]
  - Optic neuritis [Unknown]
  - Central nervous system lesion [Unknown]
  - Headache [Unknown]
  - Ataxia [Unknown]
  - Muscular weakness [Unknown]
